FAERS Safety Report 8369483-9 (Version None)
Quarter: 2012Q2

REPORT INFORMATION
  Report Type: 
  Country: None (occurrence: None)
  Receive Date: 20120518
  Receipt Date: 20120507
  Transmission Date: 20120825
  Serious: Yes (Hospitalization)
  Sender: FDA-Public Use
  Company Number: DE-PFIZER INC-2012117661

PATIENT
  Age: 46 Year
  Sex: Male

DRUGS (4)
  1. PANTOPRAZOLE [Suspect]
     Dosage: 80 MG (4X20MG, ONCE)
     Route: 065
     Dates: start: 20120506
  2. CLONAZEPAM [Suspect]
     Dosage: 2.5 MG, ONCE
     Dates: start: 20120506
  3. VALPROIC ACID [Suspect]
     Dosage: 3.6 G, ONCE
     Dates: start: 20120506
  4. TRIMIPRAMINE MALEATE [Suspect]
     Dosage: 10 ML, SINGLE (2 TEASPOONS, ONCE)
     Dates: start: 20120506

REACTIONS (3)
  - SUICIDE ATTEMPT [None]
  - VOMITING [None]
  - OVERDOSE [None]
